FAERS Safety Report 9094249 (Version 2)
Quarter: 2013Q2

REPORT INFORMATION
  Report Type: Spontaneous
  Country: US (occurrence: US)
  Receive Date: 20130219
  Receipt Date: 20130617
  Transmission Date: 20140414
  Serious: Yes (Hospitalization)
  Sender: FDA-Public Use
  Company Number: US-BAYER-2013-020383

PATIENT
  Age: 44 Year
  Sex: Female

DRUGS (7)
  1. YAZ [Suspect]
  2. ALBUTEROL [Concomitant]
     Dosage: UNK UNK, PRN
     Dates: start: 20110429
  3. FLUTICASONE [Concomitant]
     Dosage: UNK
     Dates: start: 20110429
  4. LOTREL [Concomitant]
     Dosage: UNK
     Route: 048
     Dates: start: 20110429
  5. EFFEXOR [Concomitant]
     Dosage: UNK
     Dates: start: 20110429
  6. BUSPAR [Concomitant]
     Dosage: UNK
     Dates: start: 20110429
  7. TRAMADOL [Concomitant]
     Dosage: UNK
     Route: 048
     Dates: start: 20110429

REACTIONS (1)
  - Jugular vein thrombosis [Recovered/Resolved]
